FAERS Safety Report 15829449 (Version 1)
Quarter: 2019Q1

REPORT INFORMATION
  Report Type: Spontaneous
  Country: US (occurrence: US)
  Receive Date: 20190115
  Receipt Date: 20190115
  Transmission Date: 20190417
  Serious: No
  Sender: FDA-Public Use
  Company Number: US-PERRIGO-18US005944

PATIENT
  Age: 63 Year
  Sex: Male
  Weight: 83.9 kg

DRUGS (2)
  1. TRETINOIN. [Suspect]
     Active Substance: TRETINOIN
     Indication: SKIN WRINKLING
     Dosage: SMALL AMOUNT, Q8HR
     Route: 061
     Dates: start: 201805, end: 20180601
  2. TRETINOIN. [Suspect]
     Active Substance: TRETINOIN
     Dosage: SMALL AMOUNT, QD
     Route: 061
     Dates: start: 20180602

REACTIONS (3)
  - Off label use [Recovered/Resolved]
  - Application site erythema [Recovered/Resolved]
  - Application site pain [Recovered/Resolved]

NARRATIVE: CASE EVENT DATE: 201805
